FAERS Safety Report 5797263-7 (Version None)
Quarter: 2008Q3

REPORT INFORMATION
  Report Type: 
  Country: None (occurrence: None)
  Receive Date: 20080701
  Receipt Date: 20080619
  Transmission Date: 20090109
  Serious: Yes (Other)
  Sender: FDA-Public Use
  Company Number: US-PFIZER INC-2008005906

PATIENT
  Sex: Female
  Weight: 85.909 kg

DRUGS (8)
  1. LYRICA [Suspect]
     Indication: FIBROMYALGIA
     Route: 048
     Dates: start: 20070921, end: 20080225
  2. SIMVASTATIN [Concomitant]
  3. LEVOTHYROXINE SODIUM [Concomitant]
  4. BISOPROLOL FUMARATE AND HYDROCHLOROTHIAZIDE [Concomitant]
  5. NEXIUM [Concomitant]
  6. AMITRIPTYLINE HCL [Concomitant]
  7. TENIDAP SODIUM [Concomitant]
     Route: 061
  8. METROGEL [Concomitant]

REACTIONS (8)
  - DISTURBANCE IN ATTENTION [None]
  - FATIGUE [None]
  - FEELING ABNORMAL [None]
  - INCOHERENT [None]
  - PAIN [None]
  - SOMNOLENCE [None]
  - THINKING ABNORMAL [None]
  - WEIGHT INCREASED [None]
